FAERS Safety Report 10077805 (Version 1)
Quarter: 2014Q2

REPORT INFORMATION
  Report Type: Report from Study
  Country: MX (occurrence: MX)
  Receive Date: 20140414
  Receipt Date: 20140414
  Transmission Date: 20141212
  Serious: Yes (Other)
  Sender: FDA-Public Use
  Company Number: PHHY2014MX044634

PATIENT
  Age: 78 Year
  Sex: Female

DRUGS (5)
  1. EXFORGE HCT [Suspect]
     Indication: HYPERTENSION
     Dosage: 1 DF (160/5/12.5 MG), DAILY
     Route: 048
     Dates: start: 2010, end: 2013
  2. EUTIROX [Concomitant]
     Dosage: UNK UKN, UNK
  3. MICARDIS [Concomitant]
     Indication: HYPERTENSION
     Dosage: 1 UKN, DAILY
     Dates: start: 2013
  4. SIES [Concomitant]
     Dosage: 1 UKN, DAILY
     Dates: start: 2012
  5. GAVINDO [Concomitant]
     Dosage: 2 UKN, DAILY

REACTIONS (13)
  - Intervertebral disc displacement [Not Recovered/Not Resolved]
  - Pain [Recovered/Resolved]
  - Post procedural infection [Recovered/Resolved]
  - Diabetes mellitus [Not Recovered/Not Resolved]
  - Blood pressure increased [Unknown]
  - Malaise [Unknown]
  - Headache [Unknown]
  - Dizziness [Unknown]
  - Syncope [Unknown]
  - Memory impairment [Not Recovered/Not Resolved]
  - Osteoporosis [Unknown]
  - Osteopenia [Not Recovered/Not Resolved]
  - Thyroid disorder [Not Recovered/Not Resolved]
